FAERS Safety Report 7533483-9 (Version None)
Quarter: 2011Q2

REPORT INFORMATION
  Report Type: 
  Country: None (occurrence: None)
  Receive Date: 20110608
  Receipt Date: 20060109
  Transmission Date: 20111010
  Serious: Yes (Other)
  Sender: FDA-Public Use
  Company Number: PHNR2006AU00458

PATIENT
  Sex: Female

DRUGS (2)
  1. SERTRALINE HYDROCHLORIDE [Suspect]
  2. CLOZAPINE [Suspect]
     Indication: SCHIZOPHRENIA
     Dosage: 0 - 600 MG/DAY
     Dates: start: 19981005

REACTIONS (11)
  - DELUSION OF REFERENCE [None]
  - CHEST PAIN [None]
  - STRESS [None]
  - PERICARDIAL EFFUSION [None]
  - SCHIZOPHRENIA [None]
  - PSYCHOTIC DISORDER [None]
  - PAIN [None]
  - HYPERVENTILATION [None]
  - ANXIETY [None]
  - EOSINOPHIL COUNT INCREASED [None]
  - PANIC ATTACK [None]
